FAERS Safety Report 20802866 (Version 7)
Quarter: 2022Q3

REPORT INFORMATION
  Report Type: Spontaneous
  Country: US (occurrence: US)
  Receive Date: 20220509
  Receipt Date: 20220923
  Transmission Date: 20221026
  Serious: Yes (Hospitalization, Other)
  Sender: FDA-Public Use
  Company Number: US-PFIZER INC-202200670769

PATIENT
  Age: 72 Year
  Sex: Female

DRUGS (1)
  1. IBRANCE [Suspect]
     Active Substance: PALBOCICLIB
     Dosage: 125 MG

REACTIONS (8)
  - Sepsis [Unknown]
  - Product dose omission issue [Unknown]
  - Neoplasm progression [Unknown]
  - Dizziness postural [Recovered/Resolved]
  - Fatigue [Recovering/Resolving]
  - Dry mouth [Unknown]
  - Alopecia [Unknown]
  - Diarrhoea [Unknown]
